FAERS Safety Report 8075486-4 (Version None)
Quarter: 2012Q1

REPORT INFORMATION
  Report Type: 
  Country: None (occurrence: None)
  Receive Date: 20120127
  Receipt Date: 20120124
  Transmission Date: 20120608
  Serious: Yes (Other)
  Sender: FDA-Public Use
  Company Number: US-PFIZER INC-2011036716

PATIENT
  Sex: Female
  Weight: 56.7 kg

DRUGS (11)
  1. METHOTREXATE [Concomitant]
     Dosage: UNK
  2. FISH OIL [Concomitant]
     Dosage: UNK
  3. VITAMIN E [Concomitant]
     Dosage: UNK
  4. REMICADE [Concomitant]
     Dosage: EVERY 8 WEEK
  5. LYRICA [Suspect]
     Indication: FIBROMYALGIA
     Dosage: 75 MG, 2X/DAY
     Route: 048
  6. LYRICA [Suspect]
     Indication: NEUROPATHY PERIPHERAL
     Dosage: 150 MG, 2X/DAY
  7. COREG [Concomitant]
     Indication: BLOOD PRESSURE ABNORMAL
     Dosage: UNK
  8. MULTI-VITAMINS [Concomitant]
     Dosage: UNK
  9. MELOXICAM [Concomitant]
     Dosage: UNK
  10. VITAMIN B-12 [Concomitant]
     Dosage: MONTHLY
  11. FOLIC ACID [Concomitant]
     Dosage: 1 MG, 1X/DAY

REACTIONS (6)
  - WITHDRAWAL SYNDROME [None]
  - ASTHENIA [None]
  - FEELING ABNORMAL [None]
  - HYPERHIDROSIS [None]
  - MALAISE [None]
  - DEPRESSION [None]
